FAERS Safety Report 7237962-3 (Version None)
Quarter: 2011Q1

REPORT INFORMATION
  Report Type: 
  Country: None (occurrence: None)
  Receive Date: 20110121
  Receipt Date: 20110110
  Transmission Date: 20110831
  Serious: Yes (Hospitalization)
  Sender: FDA-Public Use
  Company Number: PHHY2010PL90034

PATIENT
  Age: 12 Year
  Sex: Female

DRUGS (6)
  1. METHYLPREDNISOLONE [Concomitant]
     Indication: NEPHROTIC SYNDROME
  2. CYCLOSPORINE [Interacting]
     Indication: NEPHROTIC SYNDROME
  3. CLARITHROMYCIN [Suspect]
     Indication: BRONCHITIS
  4. PREDNISONE [Concomitant]
     Indication: NEPHROTIC SYNDROME
  5. AZATHIOPRINE [Concomitant]
  6. CYCLOPHOSPHAMIDE [Concomitant]
     Indication: NEPHROTIC SYNDROME

REACTIONS (16)
  - GLOMERULONEPHRITIS [None]
  - PROTEINURIA [None]
  - GENERALISED OEDEMA [None]
  - RALES [None]
  - IMMUNOSUPPRESSANT DRUG LEVEL DECREASED [None]
  - BLOOD TRIGLYCERIDES INCREASED [None]
  - BLOOD UREA INCREASED [None]
  - NEPHROTIC SYNDROME [None]
  - BLOOD ALBUMIN DECREASED [None]
  - RENAL FAILURE ACUTE [None]
  - RESPIRATORY TRACT INFECTION [None]
  - BLOOD CHOLESTEROL INCREASED [None]
  - DRUG INTERACTION [None]
  - PROTEIN TOTAL DECREASED [None]
  - BLOOD CREATININE INCREASED [None]
  - CREATININE RENAL CLEARANCE DECREASED [None]
